FAERS Safety Report 7149139-0 (Version None)
Quarter: 2010Q4

REPORT INFORMATION
  Report Type: 
  Country: None (occurrence: None)
  Receive Date: 20101209
  Receipt Date: 20101203
  Transmission Date: 20110411
  Serious: Yes (Hospitalization)
  Sender: FDA-Public Use
  Company Number: US-B.I. PHARMACEUTICALS,INC./RIDGEFIELD-2010-BP-11302BP

PATIENT
  Sex: Female

DRUGS (8)
  1. SPIRIVA [Suspect]
     Indication: CHRONIC OBSTRUCTIVE PULMONARY DISEASE
     Dosage: 18 MCG
     Route: 055
     Dates: start: 20090101
  2. TIKOSYN [Concomitant]
     Indication: ATRIAL FIBRILLATION
  3. ISOSORBIDE DINITRATE [Concomitant]
     Indication: CARDIAC FAILURE CONGESTIVE
  4. SPIRONOLACTONE [Concomitant]
     Indication: CARDIAC FAILURE CONGESTIVE
  5. OXYGEN [Concomitant]
     Indication: CHRONIC OBSTRUCTIVE PULMONARY DISEASE
  6. SYMBICORT [Concomitant]
     Indication: CHRONIC OBSTRUCTIVE PULMONARY DISEASE
  7. ALBUTEROL [Concomitant]
     Indication: CHRONIC OBSTRUCTIVE PULMONARY DISEASE
  8. LUMIGAN [Concomitant]
     Indication: GLAUCOMA

REACTIONS (5)
  - COUGH [None]
  - DYSPNOEA [None]
  - DYSURIA [None]
  - LOSS OF CONSCIOUSNESS [None]
  - VISION BLURRED [None]
